FAERS Safety Report 16558373 (Version 3)
Quarter: 2019Q3

REPORT INFORMATION
  Report Type: Spontaneous
  Country: JP (occurrence: JP)
  Receive Date: 20190711
  Receipt Date: 20190729
  Transmission Date: 20191004
  Serious: Yes (Life-Threatening, Hospitalization, Other)
  Sender: FDA-Public Use
  Company Number: JP-GE HEALTHCARE LIFE SCIENCES-2019CSU003609

PATIENT

DRUGS (2)
  1. OMNIPAQUE [Suspect]
     Active Substance: IOHEXOL
     Indication: SCAN WITH CONTRAST
     Dosage: 43 ML, SINGLE
     Route: 042
     Dates: start: 20190510, end: 20190510
  2. OMNIPAQUE [Suspect]
     Active Substance: IOHEXOL
     Indication: PRODUCT USED FOR UNKNOWN INDICATION
     Dosage: 100 ML, SINGLE
     Route: 042
     Dates: start: 20190621, end: 20190621

REACTIONS (3)
  - Urticaria [Unknown]
  - Anaphylactic shock [Recovered/Resolved]
  - Respiratory arrest [Recovering/Resolving]

NARRATIVE: CASE EVENT DATE: 20190510
